FAERS Safety Report 9769483 (Version 1)
Quarter: 2013Q4

REPORT INFORMATION
  Report Type: Report from Study
  Country: CA (occurrence: CA)
  Receive Date: 20131218
  Receipt Date: 20131218
  Transmission Date: 20140711
  Serious: Yes (Death)
  Sender: FDA-Public Use
  Company Number: PHHY2013CA148056

PATIENT
  Age: 88 Year
  Sex: Female

DRUGS (16)
  1. ACLASTA [Suspect]
     Indication: OSTEOPOROSIS
     Dosage: UNK
     Route: 042
     Dates: start: 20130314
  2. ALLOPURINOL [Concomitant]
     Dosage: UNK
  3. CLOPIDOGREL [Concomitant]
     Dosage: UNK
  4. CYANOCOBALAMIN [Concomitant]
     Dosage: UNK
  5. FERROUS SULPHATE [Concomitant]
     Dosage: UNK
  6. ADVAIR [Concomitant]
     Dosage: UNK
  7. FOLIC ACID [Concomitant]
     Dosage: UNK
  8. FUROSEMIDE [Concomitant]
     Dosage: UNK
  9. HYDROMORPHONE [Concomitant]
     Dosage: UNK
  10. ISOSORBIDE DINITRATE [Concomitant]
     Dosage: UNK
  11. LEVOTHYROXINE [Concomitant]
     Dosage: UNKU
  12. METHOTREXATE [Concomitant]
     Dosage: UNK
  13. NITRAZEPAM [Concomitant]
     Dosage: UNK
  14. PREDNISONE [Concomitant]
     Dosage: UNK
  15. PANTOPRAZOLE [Concomitant]
     Dosage: UNK
  16. TIOTROPIUM BROMIDE [Concomitant]
     Dosage: UNK

REACTIONS (1)
  - Peritonitis [Fatal]
